FAERS Safety Report 5526322-9 (Version None)
Quarter: 2007Q4

REPORT INFORMATION
  Report Type: 
  Country: None (occurrence: None)
  Receive Date: 20071127
  Receipt Date: 20071119
  Transmission Date: 20080405
  Serious: Yes (Life-Threatening, Other)
  Sender: FDA-Public Use
  Company Number: ES-BRISTOL-MYERS SQUIBB COMPANY-13834544

PATIENT
  Age: 75 Year
  Sex: Female

DRUGS (8)
  1. SPRYCEL [Suspect]
     Indication: CHRONIC MYELOID LEUKAEMIA
     Dosage: 15-MAY-2007 TO 25-MAY-2007 - 140 MG, RESTARTED ON 03 JULY 2007.
     Route: 048
     Dates: start: 20070515
  2. ZANIDIP [Suspect]
  3. DIANBEN [Concomitant]
     Route: 048
     Dates: start: 20050101
  4. GLIMEPIRIDE [Concomitant]
     Route: 048
     Dates: start: 20050101
  5. DABONAL PLUS [Concomitant]
     Route: 048
     Dates: start: 20050101
  6. MIXTARD HUMAN 70/30 [Concomitant]
     Dates: start: 20050101
  7. CARDURA NEO [Concomitant]
     Route: 048
     Dates: start: 20050101
  8. SEGURIL [Concomitant]
     Route: 048
     Dates: start: 20050101

REACTIONS (5)
  - ATRIOVENTRICULAR BLOCK COMPLETE [None]
  - CARDIAC FAILURE CONGESTIVE [None]
  - DYSPNOEA [None]
  - FLUID RETENTION [None]
  - PLEURAL EFFUSION [None]
